FAERS Safety Report 25902635 (Version 1)
Quarter: 2025Q4

REPORT INFORMATION
  Report Type: Spontaneous
  Country: US (occurrence: US)
  Receive Date: 20251009
  Receipt Date: 20251009
  Transmission Date: 20260118
  Serious: No
  Sender: TEVA
  Company Number: US-ABBVIE-6474718

PATIENT
  Age: 63 Year
  Sex: Female
  Weight: 136 kg

DRUGS (1)
  1. OXYTROL [Suspect]
     Active Substance: OXYBUTYNIN
     Indication: Urinary incontinence
     Dosage: 3.9MG/DAY, FREQUENCY 4 DAYS
     Route: 062
     Dates: start: 2020

REACTIONS (2)
  - Skin burning sensation [Not Recovered/Not Resolved]
  - Erythema [Not Recovered/Not Resolved]

NARRATIVE: CASE EVENT DATE: 20250923
